FAERS Safety Report 22630440 (Version 1)
Quarter: 2023Q2

REPORT INFORMATION
  Report Type: Spontaneous
  Country: DE (occurrence: DE)
  Receive Date: 20230622
  Receipt Date: 20230622
  Transmission Date: 20230722
  Serious: Yes (Congenital Anomaly, Other)
  Sender: FDA-Public Use
  Company Number: DE-FreseniusKabi-FK202309190

PATIENT
  Age: 32 Week
  Sex: Female
  Weight: 1460 kg

DRUGS (2)
  1. CARBOPLATIN [Suspect]
     Active Substance: CARBOPLATIN
     Indication: Ovarian cancer
     Dosage: AUC5/175MG/M2 KOF, Q3W FOUR CYCLES
     Route: 064
  2. PACLITAXEL [Suspect]
     Active Substance: PACLITAXEL
     Indication: Ovarian cancer
     Dosage: AUC5/175MG/M2 KOF, Q3W FOUR CYCLES
     Route: 064

REACTIONS (3)
  - Foetal growth restriction [Unknown]
  - Patent ductus arteriosus [Unknown]
  - Foetal exposure during pregnancy [Unknown]
